FAERS Safety Report 4503179-6 (Version None)
Quarter: 2004Q4

REPORT INFORMATION
  Report Type: 
  Country: None (occurrence: None)
  Receive Date: 20041117
  Receipt Date: 20041105
  Transmission Date: 20050328
  Serious: Yes (Life-Threatening, Hospitalization)
  Sender: FDA-Public Use
  Company Number: DE-MERCK-0411DEU00121

PATIENT
  Age: 80 Year
  Sex: Male

DRUGS (3)
  1. COZAAR [Suspect]
     Route: 048
     Dates: start: 20030101, end: 20041001
  2. COZAAR [Suspect]
     Route: 048
     Dates: start: 20041001, end: 20041101
  3. [THERAPY UNSPECIFIED] [Concomitant]
     Route: 065
     Dates: start: 20030101, end: 20041101

REACTIONS (6)
  - ALANINE AMINOTRANSFERASE INCREASED [None]
  - ASPARTATE AMINOTRANSFERASE INCREASED [None]
  - BRADYCARDIA [None]
  - HYPOGLYCAEMIA [None]
  - HYPOTENSION [None]
  - HYPOTHERMIA [None]
